FAERS Safety Report 9885521 (Version 1)
Quarter: 2014Q1

REPORT INFORMATION
  Report Type: Spontaneous
  Country: FR (occurrence: FR)
  Receive Date: 20140210
  Receipt Date: 20140210
  Transmission Date: 20141002
  Serious: Yes (Other)
  Sender: FDA-Public Use
  Company Number: FR-PFIZER INC-2014032664

PATIENT
  Age: 83 Year
  Sex: Female
  Weight: 71 kg

DRUGS (4)
  1. TAZOCILLINE [Suspect]
     Indication: PYELONEPHRITIS ACUTE
     Dosage: 4 DF, DAILY
     Route: 042
     Dates: start: 20131031, end: 20131218
  2. INEXIUM /01479302/ [Suspect]
     Indication: GASTROOESOPHAGEAL REFLUX DISEASE
     Dosage: 20 MG, 1X/DAY
     Dates: end: 20131218
  3. TARDYFERON [Suspect]
     Indication: IRON DEFICIENCY ANAEMIA
     Dosage: 80 MG, 2X/DAY
     Route: 048
     Dates: end: 20131218
  4. AMIKACIN MYLAN [Concomitant]
     Indication: PYELONEPHRITIS ACUTE
     Dosage: 4 DF, 4X/DAY
     Route: 042
     Dates: start: 20131031

REACTIONS (1)
  - Drug reaction with eosinophilia and systemic symptoms [Recovering/Resolving]
